FAERS Safety Report 10949283 (Version 2)
Quarter: 2015Q2

REPORT INFORMATION
  Report Type: Spontaneous
  Country: TR (occurrence: TR)
  Receive Date: 20150324
  Receipt Date: 20150420
  Transmission Date: 20150821
  Serious: Yes (Death, Hospitalization)
  Sender: FDA-Public Use
  Company Number: TR-UNITED THERAPEUTICS-UNT-2015-002780

PATIENT
  Age: 60 Year
  Sex: Female

DRUGS (1)
  1. REMODULIN [Suspect]
     Active Substance: TREPROSTINIL
     Indication: PULMONARY ARTERIAL HYPERTENSION
     Dosage: UNK
     Route: 058
     Dates: start: 20141014, end: 20150212

REACTIONS (3)
  - Respiratory arrest [Fatal]
  - Oedema [Unknown]
  - Pneumonia [Fatal]

NARRATIVE: CASE EVENT DATE: 2014
